FAERS Safety Report 6323567-5 (Version None)
Quarter: 2009Q3

REPORT INFORMATION
  Report Type: 
  Country: None (occurrence: None)
  Receive Date: 20090820
  Receipt Date: 20090805
  Transmission Date: 20100115
  Serious: Yes (Death)
  Sender: FDA-Public Use
  Company Number: JPI-P-008185

PATIENT
  Age: 47 Year
  Sex: Male

DRUGS (2)
  1. XYREM [Suspect]
     Indication: DRUG USE FOR UNKNOWN INDICATION
     Dosage: 4.5 GM (2.25 GM, 2 IN 1 D), ORAL; 3 GM (1.5 GM, 2 IN 1 D), ORAL
     Route: 048
     Dates: start: 20030911
  2. XYREM [Suspect]
     Indication: DRUG USE FOR UNKNOWN INDICATION
     Dosage: 4.5 GM (2.25 GM, 2 IN 1 D), ORAL; 3 GM (1.5 GM, 2 IN 1 D), ORAL
     Route: 048
     Dates: start: 20090317

REACTIONS (1)
  - DEATH [None]
